FAERS Safety Report 6679845-3 (Version None)
Quarter: 2010Q2

REPORT INFORMATION
  Report Type: 
  Country: None (occurrence: None)
  Receive Date: 20100409
  Receipt Date: 20100401
  Transmission Date: 20101027
  Serious: No
  Sender: FDA-Public Use
  Company Number: 2010-00374

PATIENT
  Sex: Male

DRUGS (2)
  1. ZICAM COLD REMEDY GEL SWABS [Suspect]
     Dosage: AS DIRECTED-3 MONTHS
     Dates: start: 20061201, end: 20070301
  2. ZICAM COLD REMEDY NASAL GEL [Suspect]
     Dosage: AS DIRECTED-3 MONTHS
     Dates: start: 20061201, end: 20070301

REACTIONS (1)
  - ANOSMIA [None]
